FAERS Safety Report 18929285 (Version 2)
Quarter: 2021Q1

REPORT INFORMATION
  Report Type: Spontaneous
  Country: BR (occurrence: BR)
  Receive Date: 20210223
  Receipt Date: 20210304
  Transmission Date: 20210420
  Serious: Yes (Life-Threatening, Other)
  Sender: FDA-Public Use
  Company Number: BR-TAKEDA-2021TUS011000

PATIENT
  Sex: Female
  Weight: 72 kg

DRUGS (11)
  1. ADVATE [Suspect]
     Active Substance: ANTIHEMOPHILIC FACTOR, HUMAN RECOMBINANT
     Indication: MENORRHAGIA
  2. PROPOFOL. [Suspect]
     Active Substance: PROPOFOL
     Indication: CATHETER REMOVAL
     Dosage: UNK
     Route: 065
     Dates: start: 20210215
  3. ADVATE [Suspect]
     Active Substance: ANTIHEMOPHILIC FACTOR, HUMAN RECOMBINANT
     Indication: CATHETER REMOVAL
     Dosage: 2 VIALS OF 250 INTERNATIONAL UNIT
     Route: 042
  4. ADVATE [Suspect]
     Active Substance: ANTIHEMOPHILIC FACTOR, HUMAN RECOMBINANT
     Indication: CATHETER REMOVAL
     Dosage: 2 VIALS OF 250 INTERNATIONAL UNIT
     Route: 042
  5. ADVATE [Suspect]
     Active Substance: ANTIHEMOPHILIC FACTOR, HUMAN RECOMBINANT
     Indication: MENORRHAGIA
  6. ADVATE [Suspect]
     Active Substance: ANTIHEMOPHILIC FACTOR, HUMAN RECOMBINANT
     Indication: HAEMOPHILIA
     Dosage: 2 VIALS OF 1000 INTERNATIONAL UNIT
     Route: 042
  7. ADVATE [Suspect]
     Active Substance: ANTIHEMOPHILIC FACTOR, HUMAN RECOMBINANT
     Indication: HAEMOPHILIA
     Dosage: 2 VIALS OF 1000 INTERNATIONAL UNIT
     Route: 042
  8. ADVATE [Suspect]
     Active Substance: ANTIHEMOPHILIC FACTOR, HUMAN RECOMBINANT
     Indication: MENORRHAGIA
  9. ADVATE [Suspect]
     Active Substance: ANTIHEMOPHILIC FACTOR, HUMAN RECOMBINANT
     Indication: CATHETER REMOVAL
     Dosage: 2 VIALS OF 250 INTERNATIONAL UNIT
     Route: 042
  10. ADVATE [Suspect]
     Active Substance: ANTIHEMOPHILIC FACTOR, HUMAN RECOMBINANT
     Indication: HAEMOPHILIA
     Dosage: 2 VIALS OF 1000 INTERNATIONAL UNIT
     Route: 042
  11. DIPYRONE [Concomitant]
     Active Substance: DIPYRONE
     Dosage: UNK
     Route: 065

REACTIONS (5)
  - Rash [Recovered/Resolved]
  - Menorrhagia [Unknown]
  - Blood pressure increased [Recovered/Resolved]
  - Dyspnoea [Recovered/Resolved]
  - Hypersensitivity [Recovered/Resolved]
